FAERS Safety Report 20112471 (Version 2)
Quarter: 2021Q4

REPORT INFORMATION
  Report Type: Spontaneous
  Country: US (occurrence: US)
  Receive Date: 20211125
  Receipt Date: 20211230
  Transmission Date: 20220303
  Serious: Yes (Other)
  Sender: FDA-Public Use
  Company Number: US-MLMSERVICE-20211109-3210157-2

PATIENT
  Age: 47 Year
  Sex: Female

DRUGS (6)
  1. HYDROCORTISONE ACETATE [Suspect]
     Active Substance: HYDROCORTISONE ACETATE
     Indication: Astrocytoma
     Dosage: 20 MG, 1X/DAY (EVERY MORNING)
     Dates: start: 201509, end: 201512
  2. HYDROCORTISONE ACETATE [Suspect]
     Active Substance: HYDROCORTISONE ACETATE
     Dosage: 10 MG, 1X/DAY (EVERY EVENING)
     Dates: start: 201509, end: 201509
  3. HYDROCORTISONE ACETATE [Suspect]
     Active Substance: HYDROCORTISONE ACETATE
     Dosage: 5 MG, EVERY 2 WEEKS
     Dates: start: 2015, end: 201512
  4. DEXAMETHASONE [Suspect]
     Active Substance: DEXAMETHASONE
     Indication: Astrocytoma
     Dosage: 4 MG, 2X/DAY
     Dates: start: 201507, end: 2015
  5. DEXAMETHASONE [Suspect]
     Active Substance: DEXAMETHASONE
     Dosage: 2 MG, 2X/DAY
     Dates: start: 2015, end: 2015
  6. DEXAMETHASONE [Suspect]
     Active Substance: DEXAMETHASONE
     Dosage: 10 MG, 4X/DAY (EVERY 6 H)
     Dates: start: 2019

REACTIONS (4)
  - Osteonecrosis [Unknown]
  - Adrenal insufficiency [Unknown]
  - Drug effective for unapproved indication [Unknown]
  - Off label use [Unknown]

NARRATIVE: CASE EVENT DATE: 20150901
